FAERS Safety Report 16309809 (Version 1)
Quarter: 2019Q2

REPORT INFORMATION
  Report Type: Spontaneous
  Country: US (occurrence: US)
  Receive Date: 20190514
  Receipt Date: 20190514
  Transmission Date: 20190711
  Serious: Yes (Hospitalization)
  Sender: FDA-Public Use
  Company Number: US-ELI_LILLY_AND_COMPANY-US201905002522

PATIENT
  Sex: Female

DRUGS (1)
  1. FORTEO [Suspect]
     Active Substance: TERIPARATIDE
     Indication: BONE DISORDER
     Dosage: UNK, UNKNOWN
     Route: 065
     Dates: start: 20181206

REACTIONS (5)
  - Pancreatitis [Recovering/Resolving]
  - Pancreatitis viral [Recovering/Resolving]
  - Gait disturbance [Unknown]
  - Arthropathy [Unknown]
  - Product storage error [Unknown]
